FAERS Safety Report 10170902 (Version 1)
Quarter: 2014Q2

REPORT INFORMATION
  Report Type: Spontaneous
  Country: US (occurrence: None)
  Receive Date: 20140513
  Receipt Date: 20140513
  Transmission Date: 20141212
  Serious: Yes (Hospitalization)
  Sender: FDA-Public Use
  Company Number: None

PATIENT
  Age: 6 Year
  Sex: Male
  Weight: 29.8 kg

DRUGS (5)
  1. CYTARABINE [Suspect]
     Indication: ILL-DEFINED DISORDER
  2. DEXAMETHASONE [Suspect]
  3. METHOTREXATE [Suspect]
  4. PEG-L ASPARAGINASE [Suspect]
  5. VINCRISTINE SULFATE [Suspect]

REACTIONS (2)
  - Tachycardia [None]
  - Hepatic enzyme increased [None]
